FAERS Safety Report 25918198 (Version 1)
Quarter: 2025Q4

REPORT INFORMATION
  Report Type: Spontaneous
  Country: EU (occurrence: EU)
  Receive Date: 20251014
  Receipt Date: 20251014
  Transmission Date: 20260117
  Serious: Yes (Hospitalization, Other)
  Sender: CELLTRION
  Company Number: EU-PFIZER INC-PV202500116884

PATIENT

DRUGS (1)
  1. INFLIXIMAB [Suspect]
     Active Substance: INFLIXIMAB
     Indication: Pityriasis rubra pilaris
     Dosage: UNK, TWO INFUSIONS

REACTIONS (2)
  - Dermatopathic lymphadenopathy [Unknown]
  - Off label use [Unknown]
